FAERS Safety Report 18549071 (Version 1)
Quarter: 2020Q4

REPORT INFORMATION
  Report Type: Spontaneous
  Country: NL (occurrence: NL)
  Receive Date: 20201126
  Receipt Date: 20201126
  Transmission Date: 20210114
  Serious: Yes (Hospitalization, Other)
  Sender: FDA-Public Use
  Company Number: NL-BEH-2020125282

PATIENT
  Age: 74 Year
  Sex: Female

DRUGS (3)
  1. PRIVIGEN [Suspect]
     Active Substance: HUMAN IMMUNOGLOBULIN G
     Indication: DERMATOMYOSITIS
     Dosage: 40 GRAM
     Route: 042
     Dates: start: 20201117
  2. NACL [Concomitant]
     Active Substance: SODIUM CHLORIDE
     Dosage: 100 MILLILITER, QH
     Route: 065
  3. PRIVIGEN [Suspect]
     Active Substance: HUMAN IMMUNOGLOBULIN G
     Dosage: UNK
     Route: 042
     Dates: start: 20201118

REACTIONS (13)
  - Body temperature increased [Recovering/Resolving]
  - Chest discomfort [Unknown]
  - Arthralgia [Unknown]
  - Hypersensitivity [Unknown]
  - Headache [Unknown]
  - Dyspnoea [Unknown]
  - Blood pressure increased [Unknown]
  - Nausea [Recovering/Resolving]
  - Headache [Recovering/Resolving]
  - Off label use [Unknown]
  - Nausea [Unknown]
  - Arrhythmia [Unknown]
  - No adverse event [Unknown]

NARRATIVE: CASE EVENT DATE: 20201117
